FAERS Safety Report 9336631 (Version 2)
Quarter: 2013Q4

REPORT INFORMATION
  Report Type: Report from Study
  Country: AR (occurrence: AR)
  Receive Date: 20130607
  Receipt Date: 20131121
  Transmission Date: 20140711
  Serious: Yes (Hospitalization, Other)
  Sender: FDA-Public Use
  Company Number: PHHY2013AR056610

PATIENT
  Age: 47 Year
  Sex: Male

DRUGS (3)
  1. GILENYA [Suspect]
     Indication: MULTIPLE SCLEROSIS
     Dosage: 1 DF, QD
     Route: 048
     Dates: start: 201209
  2. GILENYA [Suspect]
     Dosage: 1 DF, QD
     Route: 048
  3. CORTICOSTEROIDS [Concomitant]

REACTIONS (2)
  - Appendicitis [Recovering/Resolving]
  - Abdominal pain [Recovering/Resolving]
